FAERS Safety Report 8083075-0 (Version None)
Quarter: 2012Q1

REPORT INFORMATION
  Report Type: 
  Country: None (occurrence: None)
  Receive Date: 20120127
  Receipt Date: 20110322
  Transmission Date: 20120608
  Serious: No
  Sender: FDA-Public Use
  Company Number: US-ABBOTT-11P-163-0708624-00

PATIENT
  Sex: Female

DRUGS (1)
  1. HUMIRA [Suspect]
     Indication: CROHN'S DISEASE
     Dosage: 160MG DAY ONE
     Route: 058
     Dates: start: 20110204

REACTIONS (8)
  - SINUSITIS [None]
  - INJECTION SITE HAEMATOMA [None]
  - INJECTION SITE PAPULE [None]
  - INJECTION SITE PAIN [None]
  - INJECTION SITE REACTION [None]
  - INJECTION SITE ERYTHEMA [None]
  - OROPHARYNGEAL PAIN [None]
  - PARANASAL SINUS HYPERSECRETION [None]
